FAERS Safety Report 5412321-4 (Version None)
Quarter: 2007Q3

REPORT INFORMATION
  Report Type: 
  Country: None (occurrence: None)
  Receive Date: 20070713
  Receipt Date: 20070525
  Transmission Date: 20080115
  Serious: No
  Sender: FDA-Public Use
  Company Number: 2007SP001985

PATIENT
  Sex: Male

DRUGS (7)
  1. LUNESTA [Suspect]
     Indication: INSOMNIA
     Dosage: 2 MG;HS;ORAL
     Route: 048
     Dates: start: 20070517
  2. ASPIRIN [Concomitant]
  3. DETROL [Concomitant]
  4. LESCOL [Concomitant]
  5. VITAMIN CAP [Concomitant]
  6. TAMSULOSIN HCL [Concomitant]
  7. LOMOTIL [Concomitant]

REACTIONS (2)
  - DRUG INEFFECTIVE [None]
  - MIDDLE INSOMNIA [None]
